FAERS Safety Report 6279257-0 (Version None)
Quarter: 2009Q3

REPORT INFORMATION
  Report Type: 
  Country: None (occurrence: None)
  Receive Date: 20090717
  Receipt Date: 20090717
  Transmission Date: 20100115
  Serious: No
  Sender: FDA-Public Use
  Company Number: None

PATIENT

DRUGS (1)
  1. ZICAM [Suspect]
     Dosage: USED MID 06 DISCONTINUED MID 06

REACTIONS (2)
  - ANOSMIA [None]
  - NASAL DISCOMFORT [None]
